FAERS Safety Report 16405424 (Version 1)
Quarter: 2019Q2

REPORT INFORMATION
  Report Type: Spontaneous
  Country: BR (occurrence: BR)
  Receive Date: 20190607
  Receipt Date: 20190607
  Transmission Date: 20190711
  Serious: Yes (Hospitalization)
  Sender: FDA-Public Use
  Company Number: BR-ELI_LILLY_AND_COMPANY-BR201906001235

PATIENT
  Sex: Male
  Weight: 94 kg

DRUGS (4)
  1. AAS [Concomitant]
     Active Substance: ASPIRIN
     Indication: PRODUCT USED FOR UNKNOWN INDICATION
     Dosage: -1 UNK, DAILY
     Dates: start: 201901
  2. LOSARTAN. [Concomitant]
     Active Substance: LOSARTAN
     Indication: HYPERTENSION
     Dosage: -1 UNK, DAILY
     Dates: start: 201901
  3. EFFIENT [Suspect]
     Active Substance: PRASUGREL HYDROCHLORIDE
     Indication: ANTIPLATELET THERAPY
     Dosage: 10 MG, DAILY
     Route: 065
     Dates: start: 201902
  4. ZINPASS [Concomitant]
     Indication: BLOOD CHOLESTEROL
     Dosage: -1 UNK, DAILY
     Dates: start: 201901

REACTIONS (2)
  - Infarction [Not Recovered/Not Resolved]
  - Vascular occlusion [Not Recovered/Not Resolved]

NARRATIVE: CASE EVENT DATE: 20190525
